FAERS Safety Report 10402240 (Version 5)
Quarter: 2014Q4

REPORT INFORMATION
  Report Type: Report from Study
  Country: TH (occurrence: TH)
  Receive Date: 20140822
  Receipt Date: 20141222
  Transmission Date: 20150528
  Serious: Yes (Other)
  Sender: FDA-Public Use
  Company Number: TH-MERCK-1408THA010280

PATIENT
  Age: 33 Year
  Sex: Male

DRUGS (8)
  1. RIBAVIRIN. [Suspect]
     Active Substance: RIBAVIRIN
     Indication: HEPATITIS C
     Dosage: 800MG DAILY DOSE, QD, STRENGTH: 200MG
     Route: 048
     Dates: start: 20140430, end: 20141119
  2. PREDNISOLONE. [Concomitant]
     Active Substance: PREDNISOLONE
     Indication: NEPHROTIC SYNDROME
     Dosage: 20 MG, ^AD^
     Route: 048
     Dates: start: 20130725
  3. PAROXETINE [Concomitant]
     Active Substance: PAROXETINE\PAROXETINE HYDROCHLORIDE
     Indication: DEPRESSION
     Dosage: TOTAL DAILY DOSE 20 MG, HS (ALSO REPORTED AS 300/200)
     Route: 048
     Dates: start: 20140813
  4. TENOFOVIR [Concomitant]
     Active Substance: TENOFOVIR
     Indication: HIV INFECTION
     Dosage: TOTAL DAILY DOSE 300 MG, QD (ALSO REPORTED AS 40MG)
     Route: 048
     Dates: start: 20140423
  5. PEGINTERFERON ALFA-2B [Suspect]
     Active Substance: PEGINTERFERON ALFA-2B
     Indication: HEPATITIS C
     Dosage: TOTAL DAILY DOSE 0.4 ML, QW, REDIPEN,STRENGTH 80 MCG
     Route: 058
     Dates: start: 20140430, end: 20141119
  6. LAMIVUDINE. [Concomitant]
     Active Substance: LAMIVUDINE
     Indication: HIV INFECTION
     Dosage: TOTAL DAILY DOSE: 300 MG
     Route: 048
     Dates: start: 20111010
  7. LOPINAVIR (+) RITONAVIR [Concomitant]
     Active Substance: LOPINAVIR\RITONAVIR
     Indication: HIV INFECTION
     Dosage: TOTAL DAILY DOSE 300/75MG (ALSO REPORTED AS 3G), BID
     Route: 048
     Dates: start: 20140225
  8. FLUCONAZOLE. [Concomitant]
     Active Substance: FLUCONAZOLE
     Indication: ORAL CANDIDIASIS
     Dosage: TOTAL DAILY DOSE 200 MG, QD (ALSO REPORTED AS 750MG)
     Route: 048
     Dates: start: 20140813, end: 20140912

REACTIONS (1)
  - Diabetes mellitus [Unknown]

NARRATIVE: CASE EVENT DATE: 20140814
